FAERS Safety Report 16975825 (Version 1)
Quarter: 2019Q4

REPORT INFORMATION
  Report Type: Spontaneous
  Country: GB (occurrence: GB)
  Receive Date: 20191030
  Receipt Date: 20191030
  Transmission Date: 20200122
  Serious: Yes (Hospitalization, Other)
  Sender: FDA-Public Use
  Company Number: GB-ADVANZ PHARMA-GSH201804-001109

PATIENT

DRUGS (3)
  1. HYDROXYCHLOROQUINE [Suspect]
     Active Substance: HYDROXYCHLOROQUINE
     Indication: ARTHRITIS
     Dosage: 200 MG, BID
     Route: 065
  2. NAPROXEN. [Concomitant]
     Active Substance: NAPROXEN
     Indication: POLYARTHRITIS
  3. COCODAMOL [Concomitant]
     Active Substance: ACETAMINOPHEN\CODEINE PHOSPHATE
     Indication: POLYARTHRITIS

REACTIONS (18)
  - Hyponatraemia [Recovering/Resolving]
  - Eosinophilia [Recovering/Resolving]
  - Scab [Recovering/Resolving]
  - Dermatitis allergic [Recovering/Resolving]
  - Palpable purpura [Recovering/Resolving]
  - Cheilitis [Recovering/Resolving]
  - Erythema [Recovering/Resolving]
  - Antinuclear antibody positive [Recovering/Resolving]
  - Pyrexia [Recovering/Resolving]
  - Leukocytosis [Recovering/Resolving]
  - Drug reaction with eosinophilia and systemic symptoms [Recovering/Resolving]
  - Hypertension [Recovering/Resolving]
  - C-reactive protein increased [Recovering/Resolving]
  - Periorbital oedema [Recovering/Resolving]
  - Swelling of eyelid [Recovering/Resolving]
  - Oral discomfort [Recovering/Resolving]
  - Rash [Recovering/Resolving]
  - Skin discolouration [Recovering/Resolving]
